FAERS Safety Report 8143712-9 (Version None)
Quarter: 2012Q1

REPORT INFORMATION
  Report Type: 
  Country: None (occurrence: None)
  Receive Date: 20120217
  Receipt Date: 20120209
  Transmission Date: 20120608
  Serious: Yes (Hospitalization, Other)
  Sender: FDA-Public Use
  Company Number: US-ASTELLAS-2012US001667

PATIENT
  Sex: Female
  Weight: 52 kg

DRUGS (6)
  1. ERLOTINIB HYDROCHLORIDE [Suspect]
     Dosage: 150 MG, UID/QD
     Route: 048
  2. DASATINIB [Suspect]
     Dosage: 20 MG, UID/QD
     Route: 048
     Dates: start: 20120113, end: 20120202
  3. ERLOTINIB HYDROCHLORIDE [Suspect]
     Indication: NON-SMALL CELL LUNG CANCER METASTATIC
     Dosage: 150 MG, UID/QD
     Route: 048
     Dates: start: 20120113, end: 20120202
  4. DASATINIB [Suspect]
     Dosage: 50 MG, UID/QD
     Route: 048
  5. DASATINIB [Suspect]
     Indication: NON-SMALL CELL LUNG CANCER
     Dosage: 50 MG, UID/QD
     Route: 048
     Dates: start: 20120113, end: 20120202
  6. DASATINIB [Suspect]
     Dosage: 20 MG, UID/QD
     Route: 048

REACTIONS (12)
  - MALLORY-WEISS SYNDROME [None]
  - METABOLIC ACIDOSIS [None]
  - RETCHING [None]
  - DIARRHOEA [None]
  - BLOOD LACTATE DEHYDROGENASE INCREASED [None]
  - BLOOD MAGNESIUM DECREASED [None]
  - LYMPHOCYTE COUNT DECREASED [None]
  - DYSPEPSIA [None]
  - NAUSEA [None]
  - HAEMOGLOBIN DECREASED [None]
  - BLOOD GLUCOSE INCREASED [None]
  - HAEMATEMESIS [None]
